FAERS Safety Report 5329200-3 (Version None)
Quarter: 2007Q2

REPORT INFORMATION
  Report Type: 
  Country: None (occurrence: None)
  Receive Date: 20070518
  Receipt Date: 20070513
  Transmission Date: 20071010
  Serious: Yes (Hospitalization)
  Sender: FDA-Public Use
  Company Number: US-ALLERGAN-0705063US

PATIENT
  Sex: Female

DRUGS (1)
  1. FLUOROPLEX[R] CREAM [Suspect]
     Indication: DRUG USE FOR UNKNOWN INDICATION
     Dosage: UNK, UNKNOWN
     Route: 061

REACTIONS (3)
  - CELLULITIS [None]
  - CHEMICAL EYE INJURY [None]
  - SKIN ULCER [None]
